FAERS Safety Report 5302128-0 (Version None)
Quarter: 2007Q2

REPORT INFORMATION
  Report Type: 
  Country: None (occurrence: None)
  Receive Date: 20070419
  Receipt Date: 20070412
  Transmission Date: 20071010
  Serious: Yes (Disabling)
  Sender: FDA-Public Use
  Company Number: DE-GLAXOSMITHKLINE-D0052752A

PATIENT
  Age: 55 Year
  Sex: Female

DRUGS (4)
  1. MALARONE [Suspect]
     Indication: MALARIA PROPHYLAXIS
     Dosage: 350MG PER DAY
     Route: 048
     Dates: start: 20070205, end: 20070215
  2. CABASERIL [Suspect]
     Indication: PARKINSON'S DISEASE
     Dosage: 2MG UNKNOWN
     Route: 048
     Dates: start: 20050101
  3. METOPROLOL SUCCINATE [Concomitant]
     Indication: HYPERTENSION
     Dosage: 100MG UNKNOWN
     Route: 048
     Dates: start: 20060101
  4. ENALAPRIL [Concomitant]
     Indication: HYPERTENSION
     Dosage: 5MG UNKNOWN
     Route: 048
     Dates: start: 20040101

REACTIONS (4)
  - DEPRESSION [None]
  - FEAR [None]
  - HALLUCINATION [None]
  - PERSECUTORY DELUSION [None]
